FAERS Safety Report 6910160-6 (Version None)
Quarter: 2010Q3

REPORT INFORMATION
  Report Type: 
  Country: None (occurrence: None)
  Receive Date: 20100806
  Receipt Date: 20100726
  Transmission Date: 20110219
  Serious: Yes (Other)
  Sender: FDA-Public Use
  Company Number: GB-JNJFOC-20100505846

PATIENT
  Age: 75 Year
  Sex: Female

DRUGS (1)
  1. REMICADE [Suspect]
     Indication: CROHN'S DISEASE
     Dosage: FREQUENCY ^1/2 MONTHS^
     Route: 042

REACTIONS (2)
  - BASAL CELL CARCINOMA [None]
  - LIP NEOPLASM MALIGNANT STAGE UNSPECIFIED [None]
